FAERS Safety Report 14360438 (Version 1)
Quarter: 2018Q1

REPORT INFORMATION
  Report Type: Spontaneous
  Country: FR (occurrence: FR)
  Receive Date: 20180106
  Receipt Date: 20180106
  Transmission Date: 20180509
  Serious: Yes (Hospitalization)
  Sender: FDA-Public Use
  Company Number: FR-SUN PHARMACEUTICAL INDUSTRIES LTD-2018R1-159237

PATIENT
  Age: 65 Year
  Sex: Female
  Weight: 47 kg

DRUGS (37)
  1. AVASTIN [Suspect]
     Active Substance: BEVACIZUMAB
     Dosage: CYCLE 2 OF LV5FU2-BEVACIZUMAB ()
     Route: 041
     Dates: start: 20171023
  2. FLUOROURACIL. [Concomitant]
     Active Substance: FLUOROURACIL
     Indication: ADENOCARCINOMA OF COLON
     Dosage: 4 CYCLES OF FOLFOX-BEVACIZUMAB CHEMOTHERAPY ()
     Route: 065
     Dates: start: 20170703, end: 20170814
  3. FOLINIC ACID [Concomitant]
     Active Substance: LEUCOVORIN
     Dosage: 2 CYCLES OF LV5FU2-BEVACIZUMAB ()
     Route: 065
     Dates: start: 201408, end: 201412
  4. FLUOROURACIL. [Concomitant]
     Active Substance: FLUOROURACIL
     Dosage: CYCLE 5 DAY 1 FOLFOX (WITHOUT BEVACIZUMAB ()
     Route: 065
     Dates: start: 20170828
  5. FLUOROURACIL. [Concomitant]
     Active Substance: FLUOROURACIL
     Dosage: 10 CYCLES OF FOLFIRI-BEVACIZUMAB ()
     Route: 065
     Dates: start: 201408, end: 201412
  6. FLUOROURACIL. [Concomitant]
     Active Substance: FLUOROURACIL
     Dosage: 2 CYCLES OF LV5FU2-BEVACIZUMAB ()
     Route: 065
     Dates: start: 201408, end: 201412
  7. FLUOROURACIL. [Concomitant]
     Active Substance: FLUOROURACIL
     Dosage: LV5FU2-BEVACIZUMAB ()
     Route: 065
     Dates: start: 20171009
  8. FLUOROURACIL. [Concomitant]
     Active Substance: FLUOROURACIL
     Dosage: 12 CYCLES OF FOLFOX-BEVACIZUMAB ()
     Route: 065
     Dates: start: 201503, end: 201509
  9. FOLINIC ACID [Concomitant]
     Active Substance: LEUCOVORIN
     Dosage: CYCLE 2 OF LV5FU2-BEVACIZUMAB ()
     Route: 065
     Dates: start: 20171023
  10. FOLINIC ACID [Concomitant]
     Active Substance: LEUCOVORIN
     Dosage: 12 CYCLES OF FOLFOX-BEVACIZUMAB ()
     Route: 065
     Dates: start: 201503, end: 201509
  11. FOLINIC ACID [Concomitant]
     Active Substance: LEUCOVORIN
     Dosage: CYCLE 5 DAY 1 FOLFOX (WITHOUT BEVACIZUMAB) ()
     Route: 065
     Dates: start: 20170828
  12. FOLINIC ACID [Concomitant]
     Active Substance: LEUCOVORIN
     Dosage: LV5FU2-BEVACIZUMAB ()
     Route: 065
     Dates: start: 20171009
  13. AVASTIN [Suspect]
     Active Substance: BEVACIZUMAB
     Dosage: 12 CYCLES OF FOLFOX-BEVACIZUMAB ()
     Route: 041
     Dates: start: 201503, end: 201509
  14. AVASTIN [Suspect]
     Active Substance: BEVACIZUMAB
     Dosage: 2 CYCLES OF LV5FU2-BEVACIZUMAB ()
     Route: 041
     Dates: start: 201408, end: 201412
  15. FLUOROURACIL. [Concomitant]
     Active Substance: FLUOROURACIL
     Dosage: ()
     Route: 041
     Dates: start: 20170814
  16. FOLINIC ACID [Concomitant]
     Active Substance: LEUCOVORIN
     Dosage: 4 CYCLES OF FOLFOX-BEVACIZUMAB CHEMOTHERAPY ()
     Route: 065
     Dates: start: 20170703, end: 20170814
  17. ACIDE FOLINIQUE [Concomitant]
     Active Substance: LEUCOVORIN
     Indication: ADENOCARCINOMA OF COLON
     Dosage: ()
     Route: 041
     Dates: start: 20170814
  18. AVASTIN [Suspect]
     Active Substance: BEVACIZUMAB
     Indication: ADENOCARCINOMA OF COLON
     Dosage: 10 CYCLES OF FOLFIRI-BEVACIZUMAB ()
     Route: 041
     Dates: start: 201408, end: 201412
  19. AVASTIN [Suspect]
     Active Substance: BEVACIZUMAB
     Dosage: 3 CYCLES OF CAPECITABINE-BEVACIZUMAB ()
     Route: 041
     Dates: start: 20150930, end: 20151112
  20. AVASTIN [Suspect]
     Active Substance: BEVACIZUMAB
     Dosage: 29 CYCLE AS MONOTHERAPY ()
     Route: 041
     Dates: start: 20151202, end: 20170607
  21. AVASTIN [Suspect]
     Active Substance: BEVACIZUMAB
     Dosage: 4 CYCLES FOLFOX-BEVACIZUMAB CHEMOTHERAPY ()
     Route: 041
     Dates: start: 20170703, end: 20170814
  22. FLUOROURACIL. [Concomitant]
     Active Substance: FLUOROURACIL
     Dosage: 12 CYCLES OF FOLFOX ()
     Route: 065
     Dates: start: 201301, end: 201307
  23. FLUOROURACIL. [Concomitant]
     Active Substance: FLUOROURACIL
     Dosage: CYCLE 2 OF LV5FU2-BEVACIZUMAB. ()
     Route: 065
     Dates: start: 20171023
  24. FOLINIC ACID [Concomitant]
     Active Substance: LEUCOVORIN
     Indication: ADENOCARCINOMA OF COLON
     Dosage: CYCLE 6 DAY 1 FOLFOX-BEVACIZUMAB ()
     Route: 065
     Dates: start: 20170926
  25. FOLINIC ACID [Concomitant]
     Active Substance: LEUCOVORIN
     Dosage: 12 CYCLES OF FOLFOX ()
     Route: 065
     Dates: start: 201301, end: 201307
  26. OXALIPLATIN. [Suspect]
     Active Substance: OXALIPLATIN
     Dosage: CYCLE 5 DAY 1 FOLFOX (WITHOUT BEVACIZUMAB) ()
     Route: 041
     Dates: start: 20170828
  27. AVASTIN [Suspect]
     Active Substance: BEVACIZUMAB
     Dosage: CYCLE 1 OF LV5FU2-BEVACIZUMAB ()
     Route: 041
     Dates: start: 20171009
  28. AVASTIN [Suspect]
     Active Substance: BEVACIZUMAB
     Dosage: 5 MG/KG, UNK
     Route: 041
  29. OXALIPLATINE ACCORD [Suspect]
     Active Substance: OXALIPLATIN
     Indication: ADENOCARCINOMA OF COLON
     Dosage: ()
     Route: 041
     Dates: start: 20170731, end: 20170926
  30. OXALIPLATIN. [Suspect]
     Active Substance: OXALIPLATIN
     Dosage: 60 ML/H ()
     Route: 041
  31. OXALIPLATIN. [Suspect]
     Active Substance: OXALIPLATIN
     Dosage: 12 CYCLES OF FOLFOX-BEVACIZUMAB ()
     Route: 041
     Dates: start: 201503, end: 201509
  32. AVASTIN [Suspect]
     Active Substance: BEVACIZUMAB
     Indication: ADENOCARCINOMA OF COLON
     Dosage: UNK
     Route: 041
     Dates: start: 20170814
  33. FLUOROURACIL. [Concomitant]
     Active Substance: FLUOROURACIL
     Dosage: CYCLE 6 DAY 1 FOLFOX-BEVACIZUMAB ()
     Route: 065
     Dates: start: 20170926
  34. DEXAMETHASONE. [Concomitant]
     Active Substance: DEXAMETHASONE
     Dosage: ()
  35. OXALIPLATIN. [Suspect]
     Active Substance: OXALIPLATIN
     Dosage: CYCLE 6 DAY 1 FOLFOX-BEVACIZUMAB ()
     Route: 041
     Dates: start: 20170926
  36. OXALIPLATIN. [Suspect]
     Active Substance: OXALIPLATIN
     Dosage: FOLFOX-BEVACIZUMAB CHEMOTHERAPY CYCLE 1-4 ()
     Route: 041
     Dates: start: 20170703, end: 20170814
  37. OXALIPLATIN. [Suspect]
     Active Substance: OXALIPLATIN
     Dosage: 12 CYCLES OF FOLFOX ()
     Route: 041
     Dates: start: 201301, end: 201307

REACTIONS (9)
  - Feeling hot [Recovered/Resolved]
  - Vomiting [Recovered/Resolved]
  - Face oedema [Recovered/Resolved]
  - Throat tightness [Recovered/Resolved]
  - Hypertension [Not Recovered/Not Resolved]
  - Proteinuria [Not Recovered/Not Resolved]
  - Malaise [Recovered/Resolved]
  - Erythema [Recovered/Resolved]
  - Paraesthesia [Recovered/Resolved]

NARRATIVE: CASE EVENT DATE: 20170731
